APPROVED DRUG PRODUCT: GABAPENTIN
Active Ingredient: GABAPENTIN
Strength: 250MG/5ML
Dosage Form/Route: SOLUTION;ORAL
Application: A091286 | Product #001 | TE Code: AA
Applicant: AJENAT PHARMACEUTICALS LLC
Approved: Mar 14, 2016 | RLD: No | RS: No | Type: RX